FAERS Safety Report 7727122-1 (Version None)
Quarter: 2011Q3

REPORT INFORMATION
  Report Type: 
  Country: None (occurrence: None)
  Receive Date: 20110902
  Receipt Date: 20110823
  Transmission Date: 20111222
  Serious: Yes (Other)
  Sender: FDA-Public Use
  Company Number: BR-ABBOTT-11P-020-0848970-00

PATIENT
  Age: 80 Year
  Sex: Male
  Weight: 90 kg

DRUGS (9)
  1. LEVOTHYROXINE SODIUM [Suspect]
     Dosage: 200 MCG DAILY
  2. ANTIBIOTICS [Concomitant]
     Indication: PRODUCT USED FOR UNKNOWN INDICATION
     Route: 048
  3. LEVOTHYROXINE SODIUM [Suspect]
     Dosage: 62.5 MCG DAILY
  4. LEVOTHYROXINE SODIUM [Suspect]
     Indication: HYPOTHYROIDISM
     Dosage: 12.5 MCG DAILY
  5. OMEPRAZOLE [Suspect]
     Indication: PRODUCT USED FOR UNKNOWN INDICATION
     Route: 042
  6. HYDROCORTISONE [Suspect]
     Indication: PRODUCT USED FOR UNKNOWN INDICATION
     Dosage: 200 MG DAILY
  7. LEVOTHYROXINE SODIUM [Suspect]
     Dosage: 300 MCG DAILY
  8. GLYBURIDE [Concomitant]
     Indication: DIABETES MELLITUS
  9. ASPIRIN [Concomitant]
     Indication: PRODUCT USED FOR UNKNOWN INDICATION

REACTIONS (1)
  - MALABSORPTION [None]
